FAERS Safety Report 6631844-3 (Version None)
Quarter: 2010Q1

REPORT INFORMATION
  Report Type: 
  Country: None (occurrence: None)
  Receive Date: 20100312
  Receipt Date: 20100303
  Transmission Date: 20100710
  Serious: No
  Sender: FDA-Public Use
  Company Number: FR-EISAI INC.-E7867-00099-SPO-FR

PATIENT
  Sex: Male

DRUGS (1)
  1. GLIADEL [Suspect]
     Route: 018
     Dates: start: 20100129

REACTIONS (1)
  - HYPERTHERMIA [None]
